FAERS Safety Report 11781542 (Version 1)
Quarter: 2015Q4

REPORT INFORMATION
  Report Type: Spontaneous
  Country: JP (occurrence: JP)
  Receive Date: 20151126
  Receipt Date: 20151126
  Transmission Date: 20160305
  Serious: Yes (Other)
  Sender: FDA-Public Use
  Company Number: JP-ASTRAZENECA-2015SF10465

PATIENT

DRUGS (3)
  1. TRAZENTA [Concomitant]
     Active Substance: LINAGLIPTIN
     Dosage: DOSE UNKNOWN
     Route: 048
  2. FORXIGA [Suspect]
     Active Substance: DAPAGLIFLOZIN
     Indication: TYPE 2 DIABETES MELLITUS
     Route: 048
  3. INSULIN [Concomitant]
     Active Substance: INSULIN NOS
     Dosage: DOSE UNKNOWN
     Route: 058

REACTIONS (1)
  - Aspartate aminotransferase increased [Recovered/Resolved]
